FAERS Safety Report 8357362-2 (Version None)
Quarter: 2012Q2

REPORT INFORMATION
  Report Type: 
  Country: None (occurrence: None)
  Receive Date: 20120514
  Receipt Date: 20120511
  Transmission Date: 20120825
  Serious: Yes (Life-Threatening, Hospitalization)
  Sender: FDA-Public Use
  Company Number: ES-ROCHE-1068568

PATIENT
  Age: 83 Year
  Sex: Female

DRUGS (6)
  1. IDAPTAN [Concomitant]
     Route: 048
     Dates: end: 20111229
  2. PANTOPRAZOLE [Suspect]
     Indication: ABDOMINAL PAIN UPPER
     Route: 048
     Dates: start: 20111223, end: 20111229
  3. OMEPRAZOLE [Suspect]
     Indication: ABDOMINAL PAIN UPPER
     Route: 048
     Dates: start: 20111115, end: 20111222
  4. CIDINE [Concomitant]
     Indication: MYOCARDIAL ISCHAEMIA
     Route: 048
     Dates: end: 20111229
  5. BONIVA [Suspect]
     Indication: OSTEOPOROSIS
     Route: 048
     Dates: start: 20110701, end: 20111229
  6. CO-VALS [Concomitant]
     Indication: HYPERTENSION
     Route: 048
     Dates: end: 20111229

REACTIONS (1)
  - WARM TYPE HAEMOLYTIC ANAEMIA [None]
